FAERS Safety Report 6939177-2 (Version None)
Quarter: 2010Q3

REPORT INFORMATION
  Report Type: 
  Country: None (occurrence: None)
  Receive Date: 20100824
  Receipt Date: 20100813
  Transmission Date: 20110219
  Serious: Yes (Other)
  Sender: FDA-Public Use
  Company Number: BR-PFIZER INC-2010102051

PATIENT
  Age: 52 Year
  Sex: Female
  Weight: 52 kg

DRUGS (9)
  1. CHAMPIX [Suspect]
     Indication: TOBACCO USER
     Dosage: 0.5 MG, 1X/DAY, EVERY 24 HOURS
     Route: 048
     Dates: start: 20100809
  2. ATROVENT [Concomitant]
     Indication: ASTHMA
     Dosage: UNK
     Dates: start: 20060101
  3. PREDNISOLONE [Concomitant]
     Dosage: 40 MG, 1X/DAY
     Dates: start: 20100101
  4. BUDESONIDE/FORMOTEROL FUMARATE [Concomitant]
     Indication: BRONCHITIS
     Dosage: 12UG/400UG
     Dates: start: 20100101
  5. DUOVENT [Concomitant]
     Indication: BRONCHITIS
     Dosage: UNK
     Dates: start: 20100101
  6. LEVOTHYROXINE SODIUM [Concomitant]
     Indication: HYPOTHYROIDISM
     Dosage: UNK
  7. PURAN T4 [Concomitant]
     Indication: HYPOTHYROIDISM
     Dosage: 200 MG, UNK
     Dates: start: 20100801
  8. LEXOTAN [Concomitant]
     Indication: ANXIETY
     Dosage: 0.5 MG, UNK
  9. LEXOTAN [Concomitant]
     Indication: MUSCLE RELAXANT THERAPY

REACTIONS (9)
  - AGITATION [None]
  - CHEST DISCOMFORT [None]
  - CONFUSIONAL STATE [None]
  - ERYTHEMA [None]
  - MUSCULAR WEAKNESS [None]
  - NERVOUSNESS [None]
  - PALPITATIONS [None]
  - SWELLING FACE [None]
  - THROAT TIGHTNESS [None]
